FAERS Safety Report 19259829 (Version 1)
Quarter: 2021Q2

REPORT INFORMATION
  Report Type: Report from Study
  Country: FR (occurrence: FR)
  Receive Date: 20210514
  Receipt Date: 20210514
  Transmission Date: 20210717
  Serious: Yes (Other)
  Sender: FDA-Public Use
  Company Number: FR-GLAXOSMITHKLINE-FR2021EME100947

PATIENT
  Sex: Female
  Weight: 98 kg

DRUGS (7)
  1. DOSTARLIMAB [Suspect]
     Active Substance: DOSTARLIMAB
     Indication: ENDOMETRIAL CANCER
     Dosage: 500 MG, Z?EVERY 3 WEEK
     Route: 042
     Dates: start: 20210211
  2. DOSTARLIMAB [Suspect]
     Active Substance: DOSTARLIMAB
     Dosage: 500 MG, Z?EVERY 3 WEEK
     Route: 042
     Dates: start: 20210325
  3. DOSTARLIMAB [Suspect]
     Active Substance: DOSTARLIMAB
     Dosage: 500 MG, Z?EVERY 3 WEEK
     Route: 042
     Dates: start: 20210415
  4. ROSUVASTATINE [Concomitant]
     Active Substance: ROSUVASTATIN
  5. NEBIVOLOL. [Concomitant]
     Active Substance: NEBIVOLOL
  6. ALPRESS [Concomitant]
     Active Substance: PRAZOSIN
  7. METFORMIN [Concomitant]
     Active Substance: METFORMIN HYDROCHLORIDE

REACTIONS (1)
  - Malignant neoplasm progression [Unknown]
